FAERS Safety Report 8111966-0 (Version None)
Quarter: 2012Q1

REPORT INFORMATION
  Report Type: 
  Country: None (occurrence: None)
  Receive Date: 20120203
  Receipt Date: 20111107
  Transmission Date: 20120608
  Serious: No
  Sender: FDA-Public Use
  Company Number: US-GLAXOSMITHKLINE-A0952172A

PATIENT
  Age: 74 Year
  Sex: Male

DRUGS (4)
  1. CARBOPLATIN [Concomitant]
  2. GEMZAR [Concomitant]
  3. ARIXTRA [Suspect]
     Indication: PULMONARY EMBOLISM
     Dosage: 7.5MG PER DAY
     Route: 058
     Dates: start: 20110928
  4. CONCURRENT MEDICATIONS [Concomitant]

REACTIONS (3)
  - INJECTION SITE PAIN [None]
  - APPLICATION SITE BLEEDING [None]
  - SKIN DISCOLOURATION [None]
